FAERS Safety Report 19929132 (Version 1)
Quarter: 2021Q4

REPORT INFORMATION
  Report Type: Spontaneous
  Country: US (occurrence: US)
  Receive Date: 20211007
  Receipt Date: 20211007
  Transmission Date: 20220304
  Serious: Yes (Hospitalization)
  Sender: FDA-Public Use
  Company Number: US-TEVA-2021-US-1961059

PATIENT
  Age: 5 Year

DRUGS (12)
  1. BUSULFAN [Suspect]
     Active Substance: BUSULFAN
     Indication: Bone marrow conditioning regimen
     Route: 065
  2. CISPLATIN [Suspect]
     Active Substance: CISPLATIN
     Indication: Neuroblastoma
     Dosage: CISPLATIN 50 MG/M2/DAY OVER 1 HOUR (DAYS 1-4) OF CYCLE 3 AND 5
     Route: 042
  3. DOXORUBICIN [Suspect]
     Active Substance: DOXORUBICIN
     Indication: Neuroblastoma
     Dosage: ON DAYS 1 - 3 OF CYCLE 4 AND 6
     Route: 042
  4. ETOPOSIDE [Suspect]
     Active Substance: ETOPOSIDE
     Indication: Neuroblastoma
     Dosage: ETOPOSIDE 200 MG/M2/DAY OVER 1 HOUR (DAYS 1-3) OF CYCLE 3 AND 5
     Route: 042
  5. ISOTRETINOIN [Suspect]
     Active Substance: ISOTRETINOIN
     Indication: Neuroblastoma
     Route: 065
  6. MELPHALAN [Suspect]
     Active Substance: MELPHALAN
     Indication: Bone marrow conditioning regimen
     Route: 065
  7. MESNA [Suspect]
     Active Substance: MESNA
     Indication: Neuroblastoma
     Dosage: ADMINISTERED IMMEDIATELY PRIOR TO EACH CYCLOPHOSPHAMIDE INFUSION AND AGAIN AT 4, 8 AND 12 HOURS A...
     Route: 042
  8. TOPOTECAN [Suspect]
     Active Substance: TOPOTECAN HYDROCHLORIDE
     Indication: Neuroblastoma
     Dosage: ON DAYS 1 - 5 OF CYCLE 1 AND 2
     Route: 042
  9. VINCRISTINE [Suspect]
     Active Substance: VINCRISTINE
     Indication: Neuroblastoma
     Dosage: VINCRISTINE 0.67 MG/M2/DOSE ON DAYS 1-3 OF CYCLE 4 AND 6
     Route: 065
  10. CYCLOPHOSPHAMIDE [Suspect]
     Active Substance: CYCLOPHOSPHAMIDE
     Indication: Neuroblastoma
     Dosage: ON DAYS 1 - 5 OF CYCLE 1 AND 2
     Route: 042
  11. DINUTUXIMAB [Suspect]
     Active Substance: DINUTUXIMAB
     Indication: Neuroblastoma
     Dosage: ON DAYS 2-5 OF EACH CYCLES, FOR 6 CYCLES
     Route: 042
  12. ALDESLEUKIN [Suspect]
     Active Substance: ALDESLEUKIN
     Indication: Neuroblastoma
     Dosage: BEGAN THE DAY FOLLOWING THE LAST DOSE OF CHEMOTHERAPY AT A DOSE OF 1 MILLION UNITS/M2 AND CONTINU...
     Route: 058

REACTIONS (3)
  - Pancytopenia [Unknown]
  - Pain [Unknown]
  - Off label use [Unknown]
